FAERS Safety Report 24384837 (Version 1)
Quarter: 2024Q3

REPORT INFORMATION
  Report Type: Spontaneous
  Country: US (occurrence: None)
  Receive Date: 20240930
  Receipt Date: 20240930
  Transmission Date: 20241017
  Serious: Yes (Life-Threatening, Hospitalization)
  Sender: Public
  Company Number: None

PATIENT
  Age: 83 Year
  Sex: Male
  Weight: 67.05 kg

DRUGS (7)
  1. CREXONT [Suspect]
     Active Substance: CARBIDOPA\LEVODOPA
     Indication: Parkinson^s disease
     Dosage: 2 TABLETS 3 TIMES A DAY ORAL ?
     Route: 048
     Dates: start: 20240923, end: 20240926
  2. GOCOVRI [Concomitant]
     Active Substance: AMANTADINE
  3. NOURIANZ [Concomitant]
     Active Substance: ISTRADEFYLLINE
  4. MEMATANE [Concomitant]
  5. SINEMET [Concomitant]
     Active Substance: CARBIDOPA\LEVODOPA
  6. TAMUSOLIN [Concomitant]
  7. NAPROXEN [Concomitant]
     Active Substance: NAPROXEN

REACTIONS (6)
  - Dyskinesia [None]
  - Ataxia [None]
  - Asthenia [None]
  - Hypertension [None]
  - Oxygen saturation decreased [None]
  - Tachycardia [None]

NARRATIVE: CASE EVENT DATE: 20240926
